FAERS Safety Report 6072075-8 (Version None)
Quarter: 2009Q1

REPORT INFORMATION
  Report Type: 
  Country: None (occurrence: None)
  Receive Date: 20090210
  Receipt Date: 20090202
  Transmission Date: 20090719
  Serious: Yes (Hospitalization)
  Sender: FDA-Public Use
  Company Number: FR-AVENTIS-200910336FR

PATIENT
  Age: 84 Year
  Sex: Female

DRUGS (10)
  1. PYOSTACINE [Suspect]
     Route: 048
     Dates: start: 20081228, end: 20090106
  2. LOVENOX [Suspect]
     Route: 058
     Dates: start: 20081228, end: 20090102
  3. HYDROCORTISONE                     /00028607/ [Suspect]
     Route: 048
  4. PREVISCAN                          /00789001/ [Suspect]
     Indication: THROMBOSIS
     Route: 048
  5. KARDEGIC                           /00002703/ [Suspect]
  6. CLAMOXYL                           /00249601/ [Concomitant]
     Indication: DRUG USE FOR UNKNOWN INDICATION
     Route: 048
     Dates: start: 20090101, end: 20090104
  7. PARACETAMOL [Concomitant]
     Indication: DRUG USE FOR UNKNOWN INDICATION
     Route: 048
  8. TOPALGIC [Concomitant]
     Indication: DRUG USE FOR UNKNOWN INDICATION
     Route: 048
  9. BRICANYL [Concomitant]
     Indication: DRUG USE FOR UNKNOWN INDICATION
     Route: 055
     Dates: end: 20090107
  10. ATROVENT [Concomitant]
     Dates: start: 20090107

REACTIONS (4)
  - COLITIS [None]
  - DRUG INTERACTION [None]
  - INTERNATIONAL NORMALISED RATIO INCREASED [None]
  - RECTAL HAEMORRHAGE [None]
